FAERS Safety Report 6367284-4 (Version None)
Quarter: 2009Q3

REPORT INFORMATION
  Report Type: 
  Country: None (occurrence: None)
  Receive Date: 20090821
  Receipt Date: 20090518
  Transmission Date: 20100115
  Serious: No
  Sender: FDA-Public Use
  Company Number: 8044408

PATIENT
  Age: 24 Year
  Sex: Male
  Weight: 58.97 kg

DRUGS (2)
  1. CIMZIA [Suspect]
     Indication: CROHN'S DISEASE
     Dosage: 400 MG 1/2W SC
     Route: 058
     Dates: start: 20090224
  2. PERCOCET [Concomitant]

REACTIONS (5)
  - ABDOMINAL PAIN [None]
  - BLISTER [None]
  - DIARRHOEA [None]
  - INCORRECT PRODUCT STORAGE [None]
  - RASH [None]
